FAERS Safety Report 5178897-X (Version None)
Quarter: 2006Q4

REPORT INFORMATION
  Report Type: 
  Country: None (occurrence: None)
  Receive Date: 20061208
  Receipt Date: 20061127
  Transmission Date: 20070319
  Serious: Yes (Other)
  Sender: FDA-Public Use
  Company Number: US-2006-020378

PATIENT
  Age: 49 Year
  Sex: Female
  Weight: 88.4 kg

DRUGS (11)
  1. BETASERON [Suspect]
     Indication: RELAPSING-REMITTING MULTIPLE SCLEROSIS
     Dosage: 8 MIU, EVERY 2D, SUBCUTANEOUS
     Route: 058
     Dates: start: 20060630
  2. ZANAFLEX [Concomitant]
  3. FLEXERIL [Concomitant]
  4. PREMARIL (ESTROGENS CONJUGATED) [Concomitant]
  5. TOPROL-XL [Concomitant]
  6. LYRICA [Concomitant]
  7. KLONOPIN [Concomitant]
  8. PROTONIX [Concomitant]
  9. FLAGYL [Concomitant]
  10. IBUPROFEN [Concomitant]
  11. HYDROCHLOROTHIAZIDE [Concomitant]

REACTIONS (7)
  - HALLUCINATION [None]
  - INCORRECT DOSE ADMINISTERED [None]
  - INJECTION SITE INFLAMMATION [None]
  - INJECTION SITE PAIN [None]
  - NIGHTMARE [None]
  - PHARMACEUTICAL PRODUCT COMPLAINT [None]
  - POOR QUALITY SLEEP [None]
